FAERS Safety Report 12400201 (Version 1)
Quarter: 2016Q2

REPORT INFORMATION
  Report Type: Spontaneous
  Country: US (occurrence: None)
  Receive Date: 20160524
  Receipt Date: 20160524
  Transmission Date: 20160815
  Serious: Yes (Disabling)
  Sender: FDA-Public Use
  Company Number: None

PATIENT
  Age: 56 Year
  Sex: Male
  Weight: 81.65 kg

DRUGS (4)
  1. FLAGYL [Suspect]
     Active Substance: METRONIDAZOLE\METRONIDAZOLE HYDROCHLORIDE
     Indication: DIVERTICULITIS
     Route: 048
     Dates: start: 20160229, end: 20160307
  2. CIPROFLOXACIN, 500 MG [Suspect]
     Active Substance: CIPROFLOXACIN
     Indication: DIVERTICULITIS
     Route: 067
     Dates: start: 20160229, end: 20160307
  3. METAXALONE. [Concomitant]
     Active Substance: METAXALONE
  4. ALPRAZOLAM. [Concomitant]
     Active Substance: ALPRAZOLAM

REACTIONS (10)
  - Disorientation [None]
  - Concussion [None]
  - Diverticulitis [None]
  - Drug ineffective [None]
  - Knee arthroplasty [None]
  - Head discomfort [None]
  - Dizziness [None]
  - Feeling abnormal [None]
  - Vertigo [None]
  - Clostridium difficile infection [None]

NARRATIVE: CASE EVENT DATE: 20160310
